FAERS Safety Report 22182445 (Version 4)
Quarter: 2024Q3

REPORT INFORMATION
  Report Type: Spontaneous
  Country: US (occurrence: US)
  Receive Date: 20230406
  Receipt Date: 20240906
  Transmission Date: 20241016
  Serious: Yes (Death, Hospitalization)
  Sender: TEVA
  Company Number: US-TEVA-2023-US-2872778

PATIENT
  Age: 52 Year
  Sex: Male

DRUGS (1)
  1. AMIODARONE [Suspect]
     Active Substance: AMIODARONE
     Indication: Atrial fibrillation
     Route: 065

REACTIONS (5)
  - Hyperthyroidism [Fatal]
  - Cardiogenic shock [Fatal]
  - Thyrotoxic crisis [Fatal]
  - Cardio-respiratory arrest [Fatal]
  - Ventricular tachycardia [Fatal]
